FAERS Safety Report 12355814 (Version 2)
Quarter: 2016Q4

REPORT INFORMATION
  Report Type: Report from Study
  Country: CA (occurrence: CA)
  Receive Date: 20160511
  Receipt Date: 20161223
  Transmission Date: 20170207
  Serious: Yes (Hospitalization, Other)
  Sender: FDA-Public Use
  Company Number: CA-GILEAD-2016-0207551

PATIENT
  Age: 44 Year
  Sex: Male

DRUGS (4)
  1. SOFOSBUVIR [Suspect]
     Active Substance: SOFOSBUVIR
     Dosage: 400 MG, UNK
     Route: 048
     Dates: start: 20160401
  2. SOFOSBUVIR [Suspect]
     Active Substance: SOFOSBUVIR
     Indication: HEPATITIS C
     Dosage: , UNK, UNK, UNK
     Route: 048
     Dates: start: 20160401, end: 20160505
  3. IBAVYR [Suspect]
     Active Substance: RIBAVIRIN
     Indication: HEPATITIS C
     Dosage: 1000 MG, UNK
     Route: 048
     Dates: start: 20160401, end: 20160505
  4. IBAVYR [Suspect]
     Active Substance: RIBAVIRIN
     Dosage: 800 MG, UNK
     Route: 048
     Dates: start: 20160401

REACTIONS (10)
  - Fatigue [Unknown]
  - Overdose [Recovered/Resolved]
  - Myalgia [Unknown]
  - Nausea [Unknown]
  - Headache [Unknown]
  - Hepatic cirrhosis [Not Recovered/Not Resolved]
  - Muscle twitching [Unknown]
  - Ammonia increased [Unknown]
  - Dizziness [Unknown]
  - Insomnia [Unknown]

NARRATIVE: CASE EVENT DATE: 20160425
